FAERS Safety Report 23709984 (Version 2)
Quarter: 2024Q2

REPORT INFORMATION
  Report Type: Spontaneous
  Country: ES (occurrence: ES)
  Receive Date: 20240405
  Receipt Date: 20240625
  Transmission Date: 20240716
  Serious: Yes (Other)
  Sender: FDA-Public Use
  Company Number: ES-SA-2024SA099617

PATIENT
  Age: 55 Year
  Sex: Female

DRUGS (3)
  1. ALEMTUZUMAB [Suspect]
     Active Substance: ALEMTUZUMAB
     Indication: Relapsing-remitting multiple sclerosis
     Dosage: UNK
     Route: 041
     Dates: start: 2016
  2. EXTAVIA [Concomitant]
     Active Substance: INTERFERON BETA-1B
     Indication: Relapsing-remitting multiple sclerosis
     Dosage: UNK
  3. FINGOLIMOD [Concomitant]
     Active Substance: FINGOLIMOD
     Indication: Relapsing-remitting multiple sclerosis
     Dosage: UNK

REACTIONS (10)
  - Autoimmune thyroiditis [Recovering/Resolving]
  - Somnolence [Recovering/Resolving]
  - Oedema [Recovering/Resolving]
  - Hypothyroidism [Recovering/Resolving]
  - Glomerulonephritis membranous [Recovering/Resolving]
  - Proteinuria [Recovering/Resolving]
  - Haematuria [Recovering/Resolving]
  - Secondary progressive multiple sclerosis [Recovering/Resolving]
  - Immune thrombocytopenia [Recovering/Resolving]
  - Vitiligo [Recovering/Resolving]

NARRATIVE: CASE EVENT DATE: 20180101
